FAERS Safety Report 4590068-4 (Version None)
Quarter: 2005Q1

REPORT INFORMATION
  Report Type: 
  Country: None (occurrence: None)
  Receive Date: 20050217
  Receipt Date: 20050207
  Transmission Date: 20050727
  Serious: Yes (Death)
  Sender: FDA-Public Use
  Company Number: 2005026432

PATIENT
  Sex: Male

DRUGS (2)
  1. IRINOTECAN HCL [Suspect]
     Indication: RECTAL CANCER
     Dosage: (100 MG, INTERMITTENT), INTRAVENOUS
     Route: 042
     Dates: start: 20041201, end: 20050124
  2. TEGAFUR (TEGAFUR) [Concomitant]

REACTIONS (4)
  - BONE MARROW DEPRESSION [None]
  - CONDITION AGGRAVATED [None]
  - HEPATIC FAILURE [None]
  - RECTAL CANCER [None]
